FAERS Safety Report 6233174-0 (Version None)
Quarter: 2009Q2

REPORT INFORMATION
  Report Type: 
  Country: None (occurrence: None)
  Receive Date: 20090617
  Receipt Date: 20090611
  Transmission Date: 20091009
  Serious: Yes (Hospitalization)
  Sender: FDA-Public Use
  Company Number: GR-ABBOTT-09P-066-0579435-00

PATIENT
  Age: 80 Year
  Sex: Male
  Weight: 65 kg

DRUGS (8)
  1. ZEMPLAR [Suspect]
     Indication: HYPERPARATHYROIDISM SECONDARY
     Route: 042
  2. NEUROBION AMP [Concomitant]
     Indication: VITAMIN SUPPLEMENTATION
     Dosage: 1/HEMODIALYSIS
     Route: 042
  3. SUPERAMINE AMP [Concomitant]
     Indication: VITAMIN SUPPLEMENTATION
     Dosage: 1/HEMODIALYSIS
     Route: 042
  4. ARANESP [Concomitant]
     Indication: ANAEMIA
     Route: 042
  5. NORVASC [Concomitant]
     Indication: HYPERTENSION
     Route: 048
  6. FILICINE [Concomitant]
     Indication: VITAMIN SUPPLEMENTATION
     Route: 048
  7. ZANTAC [Concomitant]
     Indication: PROPHYLAXIS AGAINST GASTROINTESTINAL ULCER
     Route: 048
  8. RENAGEL [Concomitant]
     Indication: HYPERPHOSPHATAEMIA
     Route: 048

REACTIONS (1)
  - HYPERAMYLASAEMIA [None]
